FAERS Safety Report 17412490 (Version 1)
Quarter: 2020Q1

REPORT INFORMATION
  Report Type: Spontaneous
  Country: FI (occurrence: FI)
  Receive Date: 20200213
  Receipt Date: 20200213
  Transmission Date: 20200409
  Serious: Yes (Hospitalization)
  Sender: FDA-Public Use
  Company Number: FI-ROCHE-2541492

PATIENT
  Age: 7 Year
  Sex: Female
  Weight: 24 kg

DRUGS (3)
  1. ARAVA [Concomitant]
     Active Substance: LEFLUNOMIDE
     Indication: JUVENILE IDIOPATHIC ARTHRITIS
     Dosage: 80,MG,WEEKLY
     Route: 048
     Dates: start: 201505
  2. OFTAN DEXA [Concomitant]
     Indication: EYE DISORDER PROPHYLAXIS
     Dosage: 2,GTT,DAILY
     Route: 047
     Dates: start: 201412
  3. ROACTEMRA [Suspect]
     Active Substance: TOCILIZUMAB
     Indication: JUVENILE IDIOPATHIC ARTHRITIS
     Dosage: MOST RECENT DOSE PRIOR TO AE 14/JAN/2020
     Route: 042
     Dates: start: 20191217

REACTIONS (3)
  - Nasal congestion [Recovered/Resolved]
  - Injection site erythema [Recovered/Resolved]
  - Hypersensitivity [Recovered/Resolved]

NARRATIVE: CASE EVENT DATE: 20200114
